FAERS Safety Report 6751586-3 (Version None)
Quarter: 2010Q2

REPORT INFORMATION
  Report Type: 
  Country: None (occurrence: None)
  Receive Date: 20100602
  Receipt Date: 20100530
  Transmission Date: 20101027
  Serious: Yes (Other)
  Sender: FDA-Public Use
  Company Number: EG-ROCHE-706168

PATIENT
  Age: 57 Year
  Sex: Female

DRUGS (5)
  1. ROCEPHIN [Suspect]
     Indication: PNEUMONIA
     Dosage: DRUG: ROCPHINE, FREQUENCY: DAILY
     Route: 042
     Dates: start: 20100528
  2. LASIX [Concomitant]
  3. MERONEM [Concomitant]
     Indication: ANTIBIOTIC THERAPY
     Dosage: DRUG: MERONAM
  4. ENOXAPARIN SODIUM [Concomitant]
     Indication: THROMBOSIS PROPHYLAXIS
     Dosage: DRUG: CLEXAN
  5. NEXIUM [Concomitant]
     Indication: DRUG THERAPY
     Dosage: INDICATION: PPI

REACTIONS (1)
  - PULMONARY OEDEMA [None]
